FAERS Safety Report 5571032-5 (Version None)
Quarter: 2007Q4

REPORT INFORMATION
  Report Type: 
  Country: None (occurrence: None)
  Receive Date: 20071219
  Receipt Date: 20071206
  Transmission Date: 20080405
  Serious: Yes (Hospitalization, Other)
  Sender: FDA-Public Use
  Company Number: 237992K06USA

PATIENT
  Age: 12 Year
  Sex: Female

DRUGS (3)
  1. REBIF [Suspect]
     Indication: OFF LABEL USE
     Dosage: 44 MCG, 3 IN 1 WEEKS, SUBCUTANEOUS; 22 MCG, 3 IN 1 WEEKS, SUBCUTANEOUS
     Route: 058
     Dates: start: 20061012, end: 20070101
  2. REBIF [Suspect]
     Indication: OFF LABEL USE
     Dosage: 44 MCG, 3 IN 1 WEEKS, SUBCUTANEOUS; 22 MCG, 3 IN 1 WEEKS, SUBCUTANEOUS
     Route: 058
     Dates: start: 20070301, end: 20071101
  3. COPAXONE [Suspect]

REACTIONS (8)
  - DEATH OF RELATIVE [None]
  - DISORIENTATION [None]
  - LOSS OF CONSCIOUSNESS [None]
  - MALAISE [None]
  - MYOCLONIC EPILEPSY [None]
  - OFF LABEL USE [None]
  - PAIN IN EXTREMITY [None]
  - STRESS [None]
